FAERS Safety Report 7121971-9 (Version None)
Quarter: 2010Q4

REPORT INFORMATION
  Report Type: 
  Country: None (occurrence: None)
  Receive Date: 20101124
  Receipt Date: 20101116
  Transmission Date: 20110411
  Serious: Yes (Hospitalization)
  Sender: FDA-Public Use
  Company Number: A0815227A

PATIENT
  Age: 54 Year
  Sex: Male
  Weight: 152.7 kg

DRUGS (15)
  1. AVANDIA [Suspect]
     Indication: DIABETES MELLITUS
     Dosage: 4MG TWICE PER DAY
     Route: 048
     Dates: start: 20041101, end: 20070101
  2. ANDROGEL [Concomitant]
  3. GLUCOPHAGE [Concomitant]
  4. GLUCOTROL [Concomitant]
  5. LEVOTHYROXINE SODIUM [Concomitant]
  6. LEXAPRO [Concomitant]
  7. LOTENSIN [Concomitant]
  8. TRICOR [Concomitant]
  9. VYTORIN [Concomitant]
  10. WELLBUTRIN SR [Concomitant]
  11. AZMACORT [Concomitant]
  12. FLUTICASONE PROPIONATE [Concomitant]
  13. LUNESTA [Concomitant]
  14. ZYPREXA [Concomitant]
  15. INSULIN [Concomitant]

REACTIONS (3)
  - CARDIAC FAILURE CONGESTIVE [None]
  - CONGESTIVE CARDIOMYOPATHY [None]
  - CORONARY ARTERY DISEASE [None]
